FAERS Safety Report 19014325 (Version 1)
Quarter: 2021Q1

REPORT INFORMATION
  Report Type: Spontaneous
  Country: US (occurrence: US)
  Receive Date: 20210316
  Receipt Date: 20210316
  Transmission Date: 20210420
  Serious: Yes (Disabling)
  Sender: FDA-Public Use
  Company Number: US-ALLERGAN-2109931US

PATIENT
  Sex: Female

DRUGS (1)
  1. UBRELVY [Suspect]
     Active Substance: UBROGEPANT
     Indication: PRODUCT USED FOR UNKNOWN INDICATION

REACTIONS (3)
  - Paraesthesia [Unknown]
  - Autoscopy [Unknown]
  - Gait disturbance [Unknown]
